FAERS Safety Report 7370286-2 (Version None)
Quarter: 2011Q1

REPORT INFORMATION
  Report Type: 
  Country: None (occurrence: None)
  Receive Date: 20110323
  Receipt Date: 20110318
  Transmission Date: 20110831
  Serious: Yes (Hospitalization)
  Sender: FDA-Public Use
  Company Number: PHHO2011AT02472

PATIENT
  Sex: Female
  Weight: 53 kg

DRUGS (6)
  1. TEMESTA [Concomitant]
  2. BONDRONAT [Concomitant]
  3. AFINITOR [Suspect]
     Indication: BREAST CANCER METASTATIC
     Dosage: 10 MG, QD
     Route: 048
     Dates: start: 20101104, end: 20110207
  4. COMPARATOR EXEMESTANE [Suspect]
     Indication: BREAST CANCER METASTATIC
     Dosage: 25 MG, QD
     Route: 048
     Dates: start: 20101104
  5. PARKEMED [Concomitant]
  6. AFINITOR [Suspect]
     Dosage: OFF STUDY MEDICATION
     Dates: start: 20110208

REACTIONS (11)
  - SEPSIS [None]
  - CARDIOMYOPATHY [None]
  - PYREXIA [None]
  - DEHYDRATION [None]
  - DYSPNOEA [None]
  - MALAISE [None]
  - ACUTE PRERENAL FAILURE [None]
  - GENERAL PHYSICAL HEALTH DETERIORATION [None]
  - DIARRHOEA [None]
  - THROMBOPHLEBITIS [None]
  - RENAL IMPAIRMENT [None]
